FAERS Safety Report 7371438-8 (Version None)
Quarter: 2011Q1

REPORT INFORMATION
  Report Type: 
  Country: None (occurrence: None)
  Receive Date: 20110322
  Receipt Date: 20110322
  Transmission Date: 20110831
  Serious: Yes (Life-Threatening, Hospitalization, Disabling, Other)
  Sender: FDA-Public Use
  Company Number: None

PATIENT
  Sex: Female
  Weight: 53.0709 kg

DRUGS (3)
  1. AMBILIFY 35MG CVS PHARMACY GLENOLDEN, PA 19136 [Suspect]
     Indication: SCHIZOPHRENIFORM DISORDER
     Dosage: 35MG AMBILIFY
     Dates: start: 20080701, end: 20090801
  2. ZYPREXA [Suspect]
     Indication: PARANOIA
     Dosage: 1 MG
  3. HALDOL [Concomitant]

REACTIONS (5)
  - HALLUCINATION [None]
  - FEELING ABNORMAL [None]
  - OVERDOSE [None]
  - ANXIETY [None]
  - WEIGHT INCREASED [None]
